FAERS Safety Report 25159749 (Version 1)
Quarter: 2025Q2

REPORT INFORMATION
  Report Type: Spontaneous
  Country: JP (occurrence: JP)
  Receive Date: 20250404
  Receipt Date: 20250404
  Transmission Date: 20250716
  Serious: Yes (Death, Other)
  Sender: MERCK SHARP & DOHME LLC
  Company Number: JP-009507513-2269966

PATIENT
  Age: 50 Year
  Sex: Male

DRUGS (1)
  1. BRIDION [Suspect]
     Active Substance: SUGAMMADEX SODIUM
     Route: 042
     Dates: start: 202212

REACTIONS (2)
  - Postresuscitation encephalopathy [Fatal]
  - Anaphylactic shock [Unknown]
